FAERS Safety Report 7245360-1 (Version None)
Quarter: 2011Q1

REPORT INFORMATION
  Report Type: 
  Country: None (occurrence: None)
  Receive Date: 20110126
  Receipt Date: 20110124
  Transmission Date: 20110831
  Serious: Yes (Other)
  Sender: FDA-Public Use
  Company Number: US-ROCHE-755227

PATIENT

DRUGS (2)
  1. CLARAVIS [Suspect]
     Indication: ACNE
     Route: 065
     Dates: start: 20031101, end: 20040401
  2. ACCUTANE [Suspect]
     Route: 065
     Dates: start: 20031001, end: 20031101

REACTIONS (4)
  - COLITIS ULCERATIVE [None]
  - PAIN [None]
  - INFLAMMATORY BOWEL DISEASE [None]
  - EMOTIONAL DISTRESS [None]
